FAERS Safety Report 22396107 (Version 1)
Quarter: 2023Q2

REPORT INFORMATION
  Report Type: Spontaneous
  Country: US (occurrence: US)
  Receive Date: 20230601
  Receipt Date: 20230601
  Transmission Date: 20230722
  Serious: No
  Sender: FDA-Public Use
  Company Number: US-APIL-2315275US

PATIENT
  Sex: Female
  Weight: 114.7 kg

DRUGS (1)
  1. QULIPTA [Suspect]
     Active Substance: ATOGEPANT
     Indication: Migraine
     Dosage: 60 MG, QD
     Route: 048
     Dates: start: 20230401

REACTIONS (3)
  - Memory impairment [Unknown]
  - Therapy interrupted [Unknown]
  - Migraine [Unknown]

NARRATIVE: CASE EVENT DATE: 20230101
